FAERS Safety Report 7447078-9 (Version None)
Quarter: 2011Q2

REPORT INFORMATION
  Report Type: 
  Country: None (occurrence: None)
  Receive Date: 20110429
  Receipt Date: 20110420
  Transmission Date: 20111010
  Serious: Yes (Hospitalization)
  Sender: FDA-Public Use
  Company Number: US-ASTRAZENECA-2011SE23088

PATIENT
  Age: 23632 Day
  Sex: Male
  Weight: 95.9 kg

DRUGS (15)
  1. LIPITOR [Concomitant]
  2. ATACAN [Concomitant]
  3. DECADRON [Concomitant]
  4. ZD6474 [Suspect]
     Indication: GLIOBLASTOMA
     Route: 048
     Dates: start: 20110216, end: 20110315
  5. HYDRODIURIL [Concomitant]
  6. STUDY PROCEDURE [Suspect]
     Indication: GLIOBLASTOMA
  7. SYNTHROID [Concomitant]
  8. KEPPRA [Concomitant]
  9. ZD6474 [Suspect]
     Route: 048
     Dates: start: 20110323, end: 20110415
  10. PAROXETINE HCL [Concomitant]
  11. CARBOPLATIN [Suspect]
     Indication: GLIOBLASTOMA
     Route: 042
     Dates: start: 20110216, end: 20110216
  12. CARBOPLATIN [Suspect]
     Route: 042
     Dates: start: 20110323, end: 20110323
  13. M-V [Concomitant]
     Dosage: DAILY
  14. TRAMADOL [Concomitant]
     Indication: PAIN
  15. PRILOSEC [Concomitant]

REACTIONS (2)
  - THROMBOCYTOPENIA [None]
  - CONVULSION [None]
